FAERS Safety Report 18689094 (Version 2)
Quarter: 2021Q1

REPORT INFORMATION
  Report Type: Report from Study
  Country: None (occurrence: JP)
  Receive Date: 20201231
  Receipt Date: 20210118
  Transmission Date: 20210419
  Serious: Yes (Other)
  Sender: FDA-Public Use
  Company Number: JP-CLINIGEN GROUP PLC/ CLINIGEN HEALTHCARE LTD-JP-CLGN-20-00393

PATIENT
  Sex: Female

DRUGS (4)
  1. THERARUBICIN [Concomitant]
     Active Substance: PIRARUBICIN HYDROCHLORIDE
     Indication: HEPATOBLASTOMA
     Dates: start: 20200721, end: 20200722
  2. SAVENE [Suspect]
     Active Substance: DEXRAZOXANE
     Route: 041
     Dates: start: 20200813, end: 20200814
  3. SAVENE [Suspect]
     Active Substance: DEXRAZOXANE
     Indication: CHEMOTHERAPY CARDIOTOXICITY ATTENUATION
     Route: 041
     Dates: start: 20200721, end: 20200722
  4. THERARUBICIN [Concomitant]
     Active Substance: PIRARUBICIN HYDROCHLORIDE
     Dates: start: 20200813, end: 20200814

REACTIONS (1)
  - Off label use [Unknown]
